FAERS Safety Report 9194896 (Version 1)
Quarter: 2013Q1

REPORT INFORMATION
  Report Type: Spontaneous
  Country: US (occurrence: US)
  Receive Date: 20130328
  Receipt Date: 20130328
  Transmission Date: 20140127
  Serious: No
  Sender: FDA-Public Use
  Company Number: US-ALLERGAN-1204069US

PATIENT
  Age: 80 Year
  Sex: Female

DRUGS (5)
  1. LUMIGAN [Suspect]
     Indication: GLAUCOMA
     Dosage: 2 GTT, QHS
     Route: 047
  2. LUMIGAN [Suspect]
     Dosage: 1 GTT, QHS
     Route: 047
  3. LUMIGAN [Suspect]
     Dosage: 2 GTT, UNK
     Route: 047
     Dates: start: 201106
  4. CENTRUM                            /00554501/ [Concomitant]
     Indication: VISUAL IMPAIRMENT
     Dosage: 1 N/A, QD
     Route: 048
  5. HEART MEDICINE [Concomitant]
     Indication: CARDIAC DISORDER
     Dosage: UNK

REACTIONS (7)
  - Nasal congestion [Not Recovered/Not Resolved]
  - Sensory disturbance [Not Recovered/Not Resolved]
  - Hypoaesthesia [Not Recovered/Not Resolved]
  - Fear of falling [Not Recovered/Not Resolved]
  - Paranasal sinus hypersecretion [Not Recovered/Not Resolved]
  - Toxicity to various agents [Not Recovered/Not Resolved]
  - Gait disturbance [Not Recovered/Not Resolved]
